FAERS Safety Report 5121775-2 (Version None)
Quarter: 2006Q4

REPORT INFORMATION
  Report Type: 
  Country: None (occurrence: None)
  Receive Date: 20061003
  Receipt Date: 20060922
  Transmission Date: 20070319
  Serious: Yes (Other)
  Sender: FDA-Public Use
  Company Number: GXKR2006BR05891

PATIENT
  Sex: Female

DRUGS (1)
  1. QIFTRIM (NGX) (SULFAMETHOXAZOLE, TRIMETHOPRIM) UNKNOWN, 800/ 160MG [Suspect]
     Dosage: 800/160 MG, TID, ORAL
     Route: 048
     Dates: start: 20060921, end: 20060922

REACTIONS (3)
  - DYSPNOEA [None]
  - HYPOAESTHESIA FACIAL [None]
  - SWELLING FACE [None]
